FAERS Safety Report 4650904-X (Version None)
Quarter: 2005Q2

REPORT INFORMATION
  Report Type: 
  Country: None (occurrence: None)
  Receive Date: 20050429
  Receipt Date: 20050419
  Transmission Date: 20051028
  Serious: Yes (Hospitalization, Other)
  Sender: FDA-Public Use
  Company Number: 2005062758

PATIENT
  Age: 70 Year
  Sex: Female
  Weight: 67.586 kg

DRUGS (1)
  1. ACCUPRIL [Suspect]
     Indication: BLOOD PRESSURE
     Dosage: 20 MG (20 MG, 1 IN 1 D), ORAL
     Route: 048

REACTIONS (4)
  - DIZZINESS [None]
  - GALLBLADDER OPERATION [None]
  - HEART RATE INCREASED [None]
  - SLUGGISHNESS [None]
